FAERS Safety Report 23919783 (Version 1)
Quarter: 2024Q2

REPORT INFORMATION
  Report Type: Spontaneous
  Country: US (occurrence: US)
  Receive Date: 20240530
  Receipt Date: 20240530
  Transmission Date: 20240716
  Serious: No
  Sender: FDA-Public Use
  Company Number: US-ELI_LILLY_AND_COMPANY-US202405017538

PATIENT
  Age: 52 Year
  Sex: Female

DRUGS (20)
  1. MOUNJARO [Suspect]
     Active Substance: TIRZEPATIDE
     Indication: Body mass index increased
     Dosage: UNK UNK, UNKNOWN
     Route: 058
     Dates: start: 2023
  2. MOUNJARO [Suspect]
     Active Substance: TIRZEPATIDE
     Indication: Glucose tolerance impaired
  3. MOUNJARO [Suspect]
     Active Substance: TIRZEPATIDE
     Indication: Hypertension
  4. MOUNJARO [Suspect]
     Active Substance: TIRZEPATIDE
     Indication: Hypercholesterolaemia
  5. MOUNJARO [Suspect]
     Active Substance: TIRZEPATIDE
     Indication: Body mass index increased
     Dosage: 5 MG, UNKNOWN
     Route: 058
  6. MOUNJARO [Suspect]
     Active Substance: TIRZEPATIDE
     Indication: Body mass index increased
     Dosage: 5 MG, UNKNOWN
     Route: 058
  7. MOUNJARO [Suspect]
     Active Substance: TIRZEPATIDE
     Indication: Body mass index increased
     Dosage: 5 MG, UNKNOWN
     Route: 058
  8. MOUNJARO [Suspect]
     Active Substance: TIRZEPATIDE
     Indication: Body mass index increased
     Dosage: 5 MG, UNKNOWN
     Route: 058
  9. MOUNJARO [Suspect]
     Active Substance: TIRZEPATIDE
     Indication: Glucose tolerance impaired
  10. MOUNJARO [Suspect]
     Active Substance: TIRZEPATIDE
     Indication: Glucose tolerance impaired
  11. MOUNJARO [Suspect]
     Active Substance: TIRZEPATIDE
     Indication: Glucose tolerance impaired
  12. MOUNJARO [Suspect]
     Active Substance: TIRZEPATIDE
     Indication: Glucose tolerance impaired
  13. MOUNJARO [Suspect]
     Active Substance: TIRZEPATIDE
     Indication: Hypertension
  14. MOUNJARO [Suspect]
     Active Substance: TIRZEPATIDE
     Indication: Hypertension
  15. MOUNJARO [Suspect]
     Active Substance: TIRZEPATIDE
     Indication: Hypertension
  16. MOUNJARO [Suspect]
     Active Substance: TIRZEPATIDE
     Indication: Hypertension
  17. MOUNJARO [Suspect]
     Active Substance: TIRZEPATIDE
     Indication: Hypercholesterolaemia
  18. MOUNJARO [Suspect]
     Active Substance: TIRZEPATIDE
     Indication: Hypercholesterolaemia
  19. MOUNJARO [Suspect]
     Active Substance: TIRZEPATIDE
     Indication: Hypercholesterolaemia
  20. MOUNJARO [Suspect]
     Active Substance: TIRZEPATIDE
     Indication: Hypercholesterolaemia

REACTIONS (3)
  - Off label use [Unknown]
  - Intentional dose omission [Unknown]
  - Incorrect dose administered [Unknown]

NARRATIVE: CASE EVENT DATE: 20230101
